FAERS Safety Report 17010427 (Version 1)
Quarter: 2019Q4

REPORT INFORMATION
  Report Type: Spontaneous
  Country: US (occurrence: US)
  Receive Date: 20191107
  Receipt Date: 20191107
  Transmission Date: 20200122
  Serious: Yes (Hospitalization, Other)
  Sender: FDA-Public Use
  Company Number: None

PATIENT
  Age: 36 Year
  Sex: Female
  Weight: 60.75 kg

DRUGS (7)
  1. AMITRIPTYLINE 25MG TABLETS [Suspect]
     Active Substance: AMITRIPTYLINE
     Indication: GASTROOESOPHAGEAL REFLUX DISEASE
     Dosage: ?          QUANTITY:1 TABLET(S);?
     Route: 048
     Dates: start: 20191016, end: 20191106
  2. LEXAPRO [Concomitant]
     Active Substance: ESCITALOPRAM OXALATE
  3. TRIAMTERENE. [Concomitant]
     Active Substance: TRIAMTERENE
  4. AMITRIPTYLINE 25MG TABLETS [Suspect]
     Active Substance: AMITRIPTYLINE
     Indication: ANXIETY
     Dosage: ?          QUANTITY:1 TABLET(S);?
     Route: 048
     Dates: start: 20191016, end: 20191106
  5. AMITRIPTYLINE 25MG TABLETS [Suspect]
     Active Substance: AMITRIPTYLINE
     Indication: FIBROMYALGIA
     Dosage: ?          QUANTITY:1 TABLET(S);?
     Route: 048
     Dates: start: 20191016, end: 20191106
  6. MONTELUSK [Concomitant]
  7. OMEPRAZOLE. [Concomitant]
     Active Substance: OMEPRAZOLE

REACTIONS (6)
  - Hypertension [None]
  - Palpitations [None]
  - Abdominal pain upper [None]
  - Dizziness [None]
  - Chest pain [None]
  - Diarrhoea [None]

NARRATIVE: CASE EVENT DATE: 20191105
